FAERS Safety Report 14946689 (Version 2)
Quarter: 2019Q4

REPORT INFORMATION
  Report Type: Spontaneous
  Country: US (occurrence: US)
  Receive Date: 20180529
  Receipt Date: 20191101
  Transmission Date: 20200122
  Serious: Yes (Hospitalization)
  Sender: FDA-Public Use
  Company Number: US-CELGENEUS-USA-20180506500

PATIENT
  Age: 2 Year
  Sex: Male
  Weight: 10 kg

DRUGS (18)
  1. CYTARABINE. [Suspect]
     Active Substance: CYTARABINE
     Route: 065
     Dates: start: 20171129, end: 20171206
  2. ALLOPURINOL. [Concomitant]
     Active Substance: ALLOPURINOL
     Indication: TUMOUR LYSIS SYNDROME
     Dosage: 50 MILLIGRAM
     Route: 065
     Dates: start: 20180327, end: 20180331
  3. ALLOPURINOL. [Concomitant]
     Active Substance: ALLOPURINOL
     Indication: PROPHYLAXIS
  4. AZACITIDINE. [Suspect]
     Active Substance: AZACITIDINE
     Indication: ACUTE MYELOID LEUKAEMIA
     Dosage: 24.5 MILLIGRAM/SQ. METER
     Route: 041
     Dates: start: 20180418, end: 20180420
  5. AZACITIDINE. [Suspect]
     Active Substance: AZACITIDINE
     Route: 065
     Dates: start: 20171228, end: 20180318
  6. CYTARABINE. [Suspect]
     Active Substance: CYTARABINE
     Route: 065
     Dates: start: 20171110, end: 20171124
  7. VENETOCLAX. [Suspect]
     Active Substance: VENETOCLAX
     Dosage: 150 MILLIGRAM
     Route: 048
     Dates: start: 20180330
  8. PANTOPRAZOLE [Concomitant]
     Active Substance: PANTOPRAZOLE
     Indication: GASTROINTESTINAL HAEMORRHAGE
     Dosage: 9 MILLIGRAM
     Route: 048
     Dates: start: 20170804
  9. AZACITIDINE. [Suspect]
     Active Substance: AZACITIDINE
     Dosage: 25 MILLIGRAM/SQ. METER
     Route: 041
     Dates: start: 20180421
  10. VENETOCLAX. [Suspect]
     Active Substance: VENETOCLAX
     Indication: NEOPLASM
     Dosage: 40 MILLIEQUIVALENTS
     Route: 048
     Dates: start: 20180328, end: 20180328
  11. RED BLOOD CELLS [Concomitant]
     Active Substance: HUMAN RED BLOOD CELL
     Indication: FEBRILE NEUTROPENIA
     Dosage: 0.5 UNITS
     Route: 065
     Dates: start: 20180427
  12. SODIUM CHLORIDE. [Concomitant]
     Active Substance: SODIUM CHLORIDE
     Indication: TUMOUR LYSIS SYNDROME
     Dosage: 500 MILLILITER
     Route: 041
     Dates: start: 20180327, end: 20180331
  13. VENETOCLAX. [Suspect]
     Active Substance: VENETOCLAX
     Dosage: 80 MILLIGRAM
     Route: 048
     Dates: start: 20180329, end: 20180329
  14. CYTARABINE. [Suspect]
     Active Substance: CYTARABINE
     Indication: ACUTE MYELOID LEUKAEMIA
     Dosage: 24 MILLIGRAM
     Route: 058
     Dates: start: 20180417
  15. CYTARABINE. [Suspect]
     Active Substance: CYTARABINE
     Route: 065
     Dates: start: 20171228, end: 20180318
  16. PLATELETS [Concomitant]
     Active Substance: HUMAN PLATELET, ALLOGENIC
     Indication: FEBRILE NEUTROPENIA
     Dosage: 0.5 UNITS
     Route: 065
     Dates: start: 201805
  17. SODIUM CHLORIDE. [Concomitant]
     Active Substance: SODIUM CHLORIDE
     Indication: PROPHYLAXIS
  18. ONDANSETRON [Concomitant]
     Active Substance: ONDANSETRON
     Indication: PROPHYLAXIS OF NAUSEA AND VOMITING
     Dosage: 6 MILLIGRAM
     Route: 041
     Dates: start: 20180417, end: 20180420

REACTIONS (1)
  - Febrile neutropenia [Recovered/Resolved]

NARRATIVE: CASE EVENT DATE: 20180507
